FAERS Safety Report 15517375 (Version 2)
Quarter: 2018Q4

REPORT INFORMATION
  Report Type: Spontaneous
  Country: US (occurrence: US)
  Receive Date: 20181017
  Receipt Date: 20181026
  Transmission Date: 20190205
  Serious: Yes (Death)
  Sender: FDA-Public Use
  Company Number: US-MITSUBISHI TANABE PHARMA CORPORATION-MPE2018-0026815

PATIENT
  Age: 75 Year
  Sex: Male

DRUGS (2)
  1. RADICAVA [Suspect]
     Active Substance: EDARAVONE
     Indication: AMYOTROPHIC LATERAL SCLEROSIS
     Route: 042
     Dates: start: 201711
  2. RILUZOLE. [Concomitant]
     Active Substance: RILUZOLE
     Route: 065

REACTIONS (4)
  - Drug ineffective [Unknown]
  - Amyotrophic lateral sclerosis [Fatal]
  - Hospice care [Unknown]
  - Respiratory failure [Fatal]

NARRATIVE: CASE EVENT DATE: 20180317
